FAERS Safety Report 16772260 (Version 1)
Quarter: 2019Q4

REPORT INFORMATION
  Report Type: Spontaneous
  Country: US (occurrence: US)
  Receive Date: 20190904
  Receipt Date: 20190904
  Transmission Date: 20200122
  Serious: No
  Sender: FDA-Public Use
  Company Number: None

PATIENT
  Age: 37 Year
  Sex: Female
  Weight: 71.1 kg

DRUGS (3)
  1. ADDERALL XR [Concomitant]
     Active Substance: AMPHETAMINE ASPARTATE\AMPHETAMINE SULFATE\DEXTROAMPHETAMINE SACCHARATE\DEXTROAMPHETAMINE SULFATE
  2. LAMOTRIGINE 150MG [Suspect]
     Active Substance: LAMOTRIGINE
     Indication: DEPRESSION
     Dates: start: 20190629, end: 20190903
  3. SERTRALINE [Concomitant]
     Active Substance: SERTRALINE HYDROCHLORIDE

REACTIONS (3)
  - Wrong product administered [None]
  - Product dispensing error [None]
  - Product appearance confusion [None]

NARRATIVE: CASE EVENT DATE: 20190629
